FAERS Safety Report 11700514 (Version 1)
Quarter: 2015Q4

REPORT INFORMATION
  Report Type: Spontaneous
  Country: US (occurrence: None)
  Receive Date: 20151104
  Receipt Date: 20151104
  Transmission Date: 20160304
  Serious: Yes (Other)
  Sender: FDA-Public Use
  Company Number: None

PATIENT
  Age: 44 Year
  Sex: Female

DRUGS (1)
  1. HUMIRA [Suspect]
     Active Substance: ADALIMUMAB
     Dosage: SC 057
     Route: 058
     Dates: start: 20151019

REACTIONS (2)
  - Hypoaesthesia [None]
  - Injection site bruising [None]

NARRATIVE: CASE EVENT DATE: 20151102
